FAERS Safety Report 6211113-6 (Version None)
Quarter: 2009Q2

REPORT INFORMATION
  Report Type: 
  Country: None (occurrence: None)
  Receive Date: 20090602
  Receipt Date: 20090525
  Transmission Date: 20091009
  Serious: Yes (Hospitalization)
  Sender: FDA-Public Use
  Company Number: FR-BRISTOL-MYERS SQUIBB COMPANY-14642680

PATIENT
  Age: 65 Year
  Sex: Female

DRUGS (8)
  1. LYSODREN [Suspect]
     Indication: ADRENOCORTICAL CARCINOMA
     Dates: end: 20090329
  2. HYDROCORTISONE [Concomitant]
  3. DIFFU-K [Concomitant]
  4. SOTALOL HYDROCHLORIDE [Concomitant]
  5. ORACILLINE [Concomitant]
  6. DECTANCYL [Concomitant]
  7. AMLOR [Concomitant]
  8. TAHOR [Concomitant]
     Dosage: TAHOR 10

REACTIONS (5)
  - ADRENAL INSUFFICIENCY [None]
  - APATHY [None]
  - DRUG LEVEL ABOVE THERAPEUTIC [None]
  - HYPOKINESIA [None]
  - MENINGISM [None]
